FAERS Safety Report 24225764 (Version 2)
Quarter: 2024Q3

REPORT INFORMATION
  Report Type: Spontaneous
  Country: JP (occurrence: JP)
  Receive Date: 20240820
  Receipt Date: 20240905
  Transmission Date: 20241017
  Serious: Yes (Other)
  Sender: TEVA
  Company Number: JP-TEVA-VS-3233013

PATIENT
  Age: 2 Month
  Sex: Female

DRUGS (6)
  1. HYDROCORTISONE [Suspect]
     Active Substance: HYDROCORTISONE\HYDROCORTISONE ACETATE
     Indication: Aleukaemic leukaemia
     Dosage: AS PART OF TRIPLE INTRATHECAL THERAPY (TIT)
     Route: 037
  2. CYTARABINE [Suspect]
     Active Substance: CYTARABINE
     Indication: Aleukaemic leukaemia
     Dosage: INITIAL CHEMOTHERAPY
     Route: 065
  3. CYTARABINE [Suspect]
     Active Substance: CYTARABINE
     Indication: Aleukaemic leukaemia
     Dosage: AS PART OF TRIPLE INTRATHECAL THERAPY
     Route: 037
  4. ETOPOSIDE [Suspect]
     Active Substance: ETOPOSIDE
     Indication: Aleukaemic leukaemia
     Route: 065
  5. METHOTREXATE [Suspect]
     Active Substance: METHOTREXATE
     Indication: Aleukaemic leukaemia
     Dosage: AS PART OF TRIPLE INTRATHECAL THERAPY (TIT)
     Route: 037
  6. MITOXANTRONE [Suspect]
     Active Substance: MITOXANTRONE HYDROCHLORIDE
     Indication: Aleukaemic leukaemia
     Route: 065

REACTIONS (1)
  - Pancytopenia [Recovering/Resolving]
